FAERS Safety Report 8154669-9 (Version None)
Quarter: 2012Q1

REPORT INFORMATION
  Report Type: 
  Country: None (occurrence: None)
  Receive Date: 20120221
  Receipt Date: 20120214
  Transmission Date: 20120608
  Serious: Yes (Hospitalization)
  Sender: FDA-Public Use
  Company Number: CA-B.I. PHARMACEUTICALS,INC./RIDGEFIELD-2012-CN-00371CN

PATIENT
  Age: 73 Year
  Sex: Male
  Weight: 84 kg

DRUGS (12)
  1. NITRO-DUR [Concomitant]
     Dosage: 4.8 MG
  2. ACETAMINOPHEN [Concomitant]
  3. ATIVAN [Concomitant]
  4. PRADAXA [Suspect]
     Dosage: 220 MG
     Route: 048
  5. CRESTOR [Concomitant]
  6. OXEZE TURBUHALER [Concomitant]
  7. RATIO-HEMCORT HC [Concomitant]
  8. SECARIS [Concomitant]
  9. SPIRIVA [Concomitant]
  10. BISOPROLOL FUMARATE [Concomitant]
  11. PANTOPRAZOLE SODIUM [Concomitant]
  12. PULMICORT-100 [Concomitant]

REACTIONS (2)
  - ALLERGIC OEDEMA [None]
  - YELLOW SKIN [None]
